FAERS Safety Report 16525684 (Version 1)
Quarter: 2019Q3

REPORT INFORMATION
  Report Type: Other
  Country: GB (occurrence: GB)
  Receive Date: 20190703
  Receipt Date: 20190703
  Transmission Date: 20191004
  Serious: Yes (Other)
  Sender: FDA-Public Use
  Company Number: GB-CELLTRION INC.-2019GB022172

PATIENT

DRUGS (16)
  1. DEXAMETHASONE. [Concomitant]
     Active Substance: DEXAMETHASONE
     Indication: METASTASES TO CENTRAL NERVOUS SYSTEM
     Dosage: 16 MG, DAILY
     Route: 048
     Dates: start: 201812
  2. LEVETIRACETAM. [Concomitant]
     Active Substance: LEVETIRACETAM
     Indication: SEIZURE
     Dosage: 500 MG, DAILY
     Route: 048
  3. DENOSUMAB [Concomitant]
     Active Substance: DENOSUMAB
     Dosage: 120 MG EVERY 3 WEEKS
     Route: 058
     Dates: start: 20180503
  4. LANSOPRAZOLE. [Concomitant]
     Active Substance: LANSOPRAZOLE
     Indication: METASTASES TO CENTRAL NERVOUS SYSTEM
     Dosage: 30 MG, DAILY
     Route: 048
     Dates: start: 201812
  5. PERTUZUMAB. [Suspect]
     Active Substance: PERTUZUMAB
     Indication: BREAST CANCER
     Dosage: 420 MG EVERY 3 WEEKS
     Route: 042
     Dates: start: 20180503, end: 20181115
  6. PERTUZUMAB. [Suspect]
     Active Substance: PERTUZUMAB
     Dosage: 420 MG EVERY 3 WEEKS
     Route: 042
     Dates: start: 20190118
  7. SERTRALINE [Concomitant]
     Active Substance: SERTRALINE HYDROCHLORIDE
     Dosage: 50 MG, DAILY
     Route: 048
  8. NIFEDIPINE. [Concomitant]
     Active Substance: NIFEDIPINE
     Dosage: 60 MG, DAILY
     Route: 048
  9. TRASTUZUMAB (UNKNOWN) [Suspect]
     Active Substance: TRASTUZUMAB
     Dosage: 588 MG EVERY 3 WEEKS
     Route: 042
     Dates: start: 20180503, end: 20181115
  10. LETROZOLE. [Suspect]
     Active Substance: LETROZOLE
     Indication: BREAST CANCER
     Dosage: 2.5 MG, DAILY
     Route: 048
     Dates: start: 20171128
  11. ROSUVASTATIN. [Concomitant]
     Active Substance: ROSUVASTATIN
     Dosage: 5 MG, DAILY
     Route: 048
  12. TRASTUZUMAB (UNKNOWN) [Suspect]
     Active Substance: TRASTUZUMAB
     Dosage: 588 MG EVERY 3 WEEKS
     Route: 042
     Dates: start: 20190118
  13. PERTUZUMAB. [Suspect]
     Active Substance: PERTUZUMAB
     Dosage: 840 MG EVERY 3 WEEKS
     Route: 042
     Dates: start: 20180116, end: 20180116
  14. COCODAMOL [Concomitant]
     Active Substance: ACETAMINOPHEN\CODEINE PHOSPHATE
     Dosage: 30 MG
     Route: 048
  15. TRASTUZUMAB (UNKNOWN) [Suspect]
     Active Substance: TRASTUZUMAB
     Indication: BREAST CANCER
     Dosage: 882 MG EVERY 3 WEEKS
     Route: 042
     Dates: start: 20180116, end: 20180116
  16. FOLIC ACID. [Concomitant]
     Active Substance: FOLIC ACID
     Dosage: 5 MG, DAILY
     Route: 048
     Dates: start: 20160211

REACTIONS (2)
  - Hypokalaemia [Recovered/Resolved]
  - Urinary tract infection [Recovered/Resolved]

NARRATIVE: CASE EVENT DATE: 20190326
